FAERS Safety Report 19095125 (Version 2)
Quarter: 2021Q2

REPORT INFORMATION
  Report Type: Spontaneous
  Country: US (occurrence: US)
  Receive Date: 20210406
  Receipt Date: 20210408
  Transmission Date: 20210717
  Serious: Yes (Other)
  Sender: FDA-Public Use
  Company Number: US-SA-2021SA111868

PATIENT
  Sex: Male

DRUGS (1)
  1. CERDELGA [Suspect]
     Active Substance: ELIGLUSTAT
     Indication: GAUCHER^S DISEASE

REACTIONS (7)
  - Neuropathy peripheral [Unknown]
  - Spinal operation [Unknown]
  - Balance disorder [Unknown]
  - Gait disturbance [Unknown]
  - Dysstasia [Unknown]
  - Fall [Unknown]
  - Sciatica [Unknown]
